FAERS Safety Report 4902743-X (Version None)
Quarter: 2006Q1

REPORT INFORMATION
  Report Type: 
  Country: None (occurrence: None)
  Receive Date: 20060113
  Receipt Date: 20050412
  Transmission Date: 20060701
  Serious: Yes (Other)
  Sender: FDA-Public Use
  Company Number: HQWYE026414APR05

PATIENT
  Age: 59 Year
  Sex: Female
  Weight: 79.45 kg

DRUGS (9)
  1. PREMPRO [Suspect]
     Indication: HORMONE REPLACEMENT THERAPY
     Dosage: ORAL
     Route: 048
     Dates: start: 19970101
  2. PREMPRO [Suspect]
     Indication: MENOPAUSAL SYMPTOMS
     Dosage: ORAL
     Route: 048
     Dates: start: 19970101
  3. PREMARIN [Suspect]
     Indication: MENOPAUSAL SYMPTOMS
     Dosage: ORAL
     Route: 048
     Dates: start: 19890101
  4. PROVERA [Suspect]
     Indication: HORMONE REPLACEMENT THERAPY
     Dates: start: 19890101, end: 19970101
  5. SYNTHROID [Concomitant]
  6. ZOCOR [Concomitant]
  7. INSULIN (INSULIN) [Concomitant]
  8. HUMULIN (INSULIN HUMAN) [Concomitant]
  9. GLUCOPHAGE [Concomitant]

REACTIONS (1)
  - BREAST CANCER [None]
